FAERS Safety Report 4698256-3 (Version None)
Quarter: 2005Q2

REPORT INFORMATION
  Report Type: 
  Country: None (occurrence: None)
  Receive Date: 20050621
  Receipt Date: 20050614
  Transmission Date: 20051028
  Serious: Yes (Death)
  Sender: FDA-Public Use
  Company Number: 0410021

PATIENT
  Age: 1 Year
  Sex: Male
  Weight: 0.4536 kg

DRUGS (3)
  1. NITISINONE/COMPASS.USE [Suspect]
     Indication: TYROSINAEMIA
     Dosage: 0.78 MG/KG/DAY
     Dates: start: 20040531, end: 20040618
  2. VANCOMYCIN [Concomitant]
  3. IMIPENEM [Concomitant]

REACTIONS (4)
  - EPISTAXIS [None]
  - HAEMATOMA [None]
  - INFECTION MASKED [None]
  - PULMONARY HAEMORRHAGE [None]
